FAERS Safety Report 9519406 (Version 1)
Quarter: 2013Q1

REPORT INFORMATION
  Report Type: Spontaneous
  Country: US (occurrence: None)
  Receive Date: 20130305
  Receipt Date: 20130305
  Transmission Date: 20140127
  Serious: Yes (Hospitalization)
  Sender: FDA-Public Use
  Company Number: 163-21880-12020543

PATIENT
  Age: 58 Year
  Sex: Female
  Weight: 92.99 kg

DRUGS (12)
  1. REVLIMID (LENALIDOMIDE) (25 MILLIGRAM, CAPSULES) [Suspect]
     Indication: PLASMA CELL MYELOMA
     Dosage: 25 MG, 1 IN 1 D, PO
     Route: 048
     Dates: start: 200712
  2. INSULIN NOVOLIN (HUMAN MIXTARD) (UNKNOWN) [Concomitant]
  3. DILANTIN (PHENYTOIN SODIUM) (UNKNOWN)? [Concomitant]
  4. SYNTHROID (LEVOTHYROXINE SODIUM) (UNKNOWN)? [Concomitant]
  5. PROMETHAZINE (PROMETHAZINE) (UNKNOWN) [Concomitant]
  6. CELEXA (CITALOPRAM HYDROBEROMIDE) (UNKNOWN) [Concomitant]
  7. NEURONTIN (GABAPENTIN) (UNKNOWN) [Concomitant]
  8. METOPROLOL (METOPROLOL) (UNKNOWN) [Concomitant]
  9. PROTONIX (UNKNOWN) [Concomitant]
  10. LASIX (FUROSEMIDE) (UNKNOWN) [Concomitant]
  11. IMMODIUM (LOPERAMIDE HYDROCHLORIDE) (UNKNOWN) [Concomitant]
  12. HYDROCODONE (HYDROCODONE) (UNKNOWN) [Concomitant]

REACTIONS (5)
  - Blister [None]
  - Postoperative wound infection [None]
  - Pyrexia [None]
  - Blood pressure decreased [None]
  - Anaemia [None]
